FAERS Safety Report 16439810 (Version 1)
Quarter: 2019Q3

REPORT INFORMATION
  Report Type: Spontaneous
  Country: US (occurrence: US)
  Receive Date: 20190615
  Receipt Date: 20190615
  Transmission Date: 20191004
  Serious: No
  Sender: FDA-Public Use
  Company Number: None

PATIENT
  Age: 45 Year
  Sex: Female
  Weight: 109.8 kg

DRUGS (12)
  1. AIMOVIG [Suspect]
     Active Substance: ERENUMAB-AOOE
     Dosage: ?          OTHER FREQUENCY:WENT FROM 1;?
  2. ATENOLOL. [Concomitant]
     Active Substance: ATENOLOL
  3. SINGULAIR [Concomitant]
     Active Substance: MONTELUKAST SODIUM
  4. AMBIEN [Concomitant]
     Active Substance: ZOLPIDEM TARTRATE
  5. CARDEZEIM [Concomitant]
  6. VITAMIN D [Concomitant]
     Active Substance: VITAMIN D NOS
  7. ALEVE [Concomitant]
     Active Substance: NAPROXEN SODIUM
  8. ABILIFY [Concomitant]
     Active Substance: ARIPIPRAZOLE
  9. OXYBUTININ [Concomitant]
     Active Substance: OXYBUTYNIN
  10. TYLENOL [Concomitant]
     Active Substance: ACETAMINOPHEN
  11. TROKENDI XR [Concomitant]
     Active Substance: TOPIRAMATE
  12. ZOLOFTKM [Concomitant]

REACTIONS (4)
  - Fatigue [None]
  - Chest pain [None]
  - Dyspnoea [None]
  - Tachycardia [None]

NARRATIVE: CASE EVENT DATE: 20190318
